FAERS Safety Report 8223658-8 (Version None)
Quarter: 2012Q1

REPORT INFORMATION
  Report Type: 
  Country: None (occurrence: None)
  Receive Date: 20120316
  Receipt Date: 20120306
  Transmission Date: 20120608
  Serious: Yes (Other)
  Sender: FDA-Public Use
  Company Number: LB-2012-1265

PATIENT
  Sex: Female

DRUGS (2)
  1. NAVELBINE [Suspect]
     Indication: BREAST CANCER METASTATIC
     Dosage: 30 MG/M2 IV
     Route: 042
  2. CISPLATIN [Suspect]
     Indication: BREAST CANCER METASTATIC
     Dosage: 120 MG/M2 IV
     Route: 036

REACTIONS (5)
  - NEUROPATHY PERIPHERAL [None]
  - NAUSEA [None]
  - VOMITING [None]
  - NEPHROPATHY TOXIC [None]
  - OTOTOXICITY [None]
